FAERS Safety Report 20019695 (Version 7)
Quarter: 2023Q2

REPORT INFORMATION
  Report Type: Spontaneous
  Country: US (occurrence: US)
  Receive Date: 20211101
  Receipt Date: 20230601
  Transmission Date: 20230722
  Serious: No
  Sender: FDA-Public Use
  Company Number: US-PFIZER INC-2021701942

PATIENT
  Age: 66 Year
  Sex: Female

DRUGS (4)
  1. IBRANCE [Suspect]
     Active Substance: PALBOCICLIB
     Indication: Breast cancer metastatic
     Dosage: DAILY FOR 21 DAYS OUT OF A 28 DAY CYCLE
  2. IBRANCE [Suspect]
     Active Substance: PALBOCICLIB
     Dosage: UNK
     Dates: start: 2021
  3. IBRANCE [Suspect]
     Active Substance: PALBOCICLIB
     Dosage: 100 MG
     Dates: start: 20210430
  4. IBRANCE [Suspect]
     Active Substance: PALBOCICLIB
     Dosage: 11 TABLET BY MOUTH ONCE DAILY FOR 21 DAYS ON THEN 7 DAYS OFF EVERY 28 DAYS
     Route: 048

REACTIONS (7)
  - Fatigue [Unknown]
  - Diarrhoea [Unknown]
  - Neoplasm progression [Unknown]
  - Alopecia [Unknown]
  - Pain of skin [Unknown]
  - Overdose [Unknown]
  - Brain fog [Unknown]
